FAERS Safety Report 6669337-X (Version None)
Quarter: 2010Q2

REPORT INFORMATION
  Report Type: 
  Country: None (occurrence: None)
  Receive Date: 20100406
  Receipt Date: 20100402
  Transmission Date: 20101027
  Serious: Yes (Death)
  Sender: FDA-Public Use
  Company Number: A0801480A

PATIENT
  Age: 48 Year
  Sex: Female
  Weight: 100.9 kg

DRUGS (1)
  1. AVANDAMET [Suspect]
     Indication: DIABETES MELLITUS
     Route: 048
     Dates: end: 20050501

REACTIONS (2)
  - CONGESTIVE CARDIOMYOPATHY [None]
  - HEART INJURY [None]
